FAERS Safety Report 4677697-4 (Version None)
Quarter: 2005Q2

REPORT INFORMATION
  Report Type: 
  Country: None (occurrence: None)
  Receive Date: 20050527
  Receipt Date: 20050127
  Transmission Date: 20051028
  Serious: Yes (Other)
  Sender: FDA-Public Use
  Company Number: ENT 2005-0012

PATIENT
  Age: 78 Year
  Sex: Male

DRUGS (5)
  1. COMTAN [Suspect]
     Dosage: SEE IMAGE
     Route: 048
  2. PERMAX [Concomitant]
  3. SINEMET [Concomitant]
  4. CLONAZEPAM [Concomitant]
  5. PANTOPRAZOLE SODIUM [Concomitant]

REACTIONS (6)
  - DROOLING [None]
  - DYSKINESIA [None]
  - DYSPHAGIA [None]
  - EYELID DISORDER [None]
  - INCORRECT DOSE ADMINISTERED [None]
  - ON AND OFF PHENOMENON [None]
